FAERS Safety Report 12262082 (Version 2)
Quarter: 2016Q2

REPORT INFORMATION
  Report Type: Report from Study
  Country: US (occurrence: US)
  Receive Date: 20160413
  Receipt Date: 20160418
  Transmission Date: 20160815
  Serious: Yes (Hospitalization, Other)
  Sender: FDA-Public Use
  Company Number: US-GLAXOSMITHKLINE-US2015105068

PATIENT
  Age: 61 Year
  Sex: Female
  Weight: 77 kg

DRUGS (20)
  1. GABAPENTIN. [Concomitant]
     Active Substance: GABAPENTIN
     Indication: PRE-EXISTING DISEASE
     Dosage: DOSAGE FORM: UNSPECIFIED
     Route: 048
     Dates: start: 2001
  2. MORPHINE [Concomitant]
     Active Substance: MORPHINE
     Indication: PRE-EXISTING DISEASE
     Dosage: DOSAGE FORM: UNSPECIFIED, ML
     Route: 058
     Dates: start: 201406
  3. BLINDED PLACEBO [Suspect]
     Active Substance: INVESTIGATIONAL PRODUCT
     Indication: SMOKING CESSATION THERAPY
     Dosage: DOSAGE FORM: SPRAY, AS DIRECTED
     Route: 048
     Dates: start: 20150516, end: 2015
  4. RANITIDINE. [Concomitant]
     Active Substance: RANITIDINE
     Indication: PRE-EXISTING DISEASE
     Dosage: DOSAGE FORM: UNSPECIFIED
     Route: 048
     Dates: start: 2012
  5. SUPER B COMPLEX [Concomitant]
     Active Substance: CYANOCOBALAMIN\DEXPANTHENOL\NIACINAMIDE\PYRIDOXINE HYDROCHLORIDE\RIBOFLAVIN 5^-PHOSPHATE SODIUM\THIAMINE HYDROCHLORIDE\VITAMIN B COMPLEX
     Indication: NUTRITIONAL SUPPLEMENTATION
     Dosage: DOSAGE FORM: UNSPECIFIED
     Route: 048
     Dates: start: 1995
  6. PEPCID [Concomitant]
     Active Substance: FAMOTIDINE
     Indication: PRE-EXISTING DISEASE
     Dosage: DOSAGE FORM: UNSPECIFIED, ML
     Route: 048
     Dates: start: 20150708, end: 20150708
  7. CITALOPRAM [Concomitant]
     Active Substance: CITALOPRAM HYDROBROMIDE
     Indication: PRE-EXISTING DISEASE
     Dosage: DOSAGE FORM: UNSPECIFIED
     Route: 048
     Dates: start: 1980
  8. SUMATRIPTAN. [Concomitant]
     Active Substance: SUMATRIPTAN
     Indication: PRE-EXISTING DISEASE
     Dosage: DOSAGE FORM: UNSPECIFIED
     Route: 048
     Dates: start: 1971
  9. OMEGA 3 FATTY ACID [Concomitant]
     Active Substance: OMEGA-3 FATTY ACIDS
     Indication: NUTRITIONAL SUPPLEMENTATION
     Dosage: DOSAGE FORM: UNSPECIFIED
     Route: 048
     Dates: start: 1995
  10. PROMETHAZINE [Concomitant]
     Active Substance: PROMETHAZINE\PROMETHAZINE HYDROCHLORIDE
     Indication: PRE-EXISTING DISEASE
     Dosage: DOSAGE FORM: UNSPECIFIED
     Route: 048
     Dates: start: 2001
  11. TRAZODONE [Concomitant]
     Active Substance: TRAZODONE HYDROCHLORIDE
     Indication: PRE-EXISTING DISEASE
     Dosage: DOSAGE FORM: UNSPECIFIED
     Route: 048
     Dates: start: 2005
  12. CHROMIUM [Concomitant]
     Active Substance: CHROMIC CHLORIDE\CHROMIUM
     Indication: NUTRITIONAL SUPPLEMENTATION
     Dosage: DOSAGE FORM: UNSPECIFIED
     Route: 048
     Dates: start: 2005
  13. MULTIVITAMINS [Concomitant]
     Active Substance: VITAMINS
     Indication: NUTRITIONAL SUPPLEMENTATION
     Dosage: DOSAGE FORM: UNSPECIFIED
     Route: 048
     Dates: start: 1995
  14. BLINDED NICOTINE [Suspect]
     Active Substance: NICOTINE
     Indication: SMOKING CESSATION THERAPY
     Dosage: DOSAGE FORM: SPRAY, AS DIRECTED
     Route: 048
     Dates: start: 20150516, end: 2015
  15. HYDROCHLOROTHIAZIDE + TRIAMTERENE [Concomitant]
     Active Substance: HYDROCHLOROTHIAZIDE\TRIAMTERENE
     Indication: PRE-EXISTING DISEASE
     Dosage: 37.5 MG, UNK
     Route: 048
     Dates: start: 1971
  16. FLONASE [Concomitant]
     Active Substance: FLUTICASONE PROPIONATE
     Indication: PRE-EXISTING DISEASE
     Dosage: DOSAGE FORM: UNSPECIFIED
     Route: 045
     Dates: start: 2000
  17. CINNAMON. [Concomitant]
     Active Substance: CINNAMON
     Indication: NUTRITIONAL SUPPLEMENTATION
     Dosage: DOSAGE FORM: UNSPECIFIED
     Route: 048
     Dates: start: 2005
  18. CALCIUM + COLECALCIFEROL [Concomitant]
     Indication: NUTRITIONAL SUPPLEMENTATION
     Dosage: DOSAGE FORM: UNSPECIFIED
     Route: 048
     Dates: start: 1995
  19. FUROSEMIDE. [Concomitant]
     Active Substance: FUROSEMIDE
     Indication: PRE-EXISTING DISEASE
     Dosage: DOSAGE FORM: UNSPECIFIED
     Route: 048
     Dates: start: 1971
  20. SENNA LEAF [Concomitant]
     Active Substance: SENNA LEAF
     Indication: NUTRITIONAL SUPPLEMENTATION
     Dosage: DOSAGE FORM: UNSPECIFIED
     Route: 048
     Dates: start: 1995

REACTIONS (5)
  - Sepsis [Recovered/Resolved]
  - Acute kidney injury [Recovered/Resolved]
  - Hypernatraemia [Recovered/Resolved]
  - Cellulitis [Recovered/Resolved]
  - Periodontitis [Recovered/Resolved]

NARRATIVE: CASE EVENT DATE: 20150701
